FAERS Safety Report 13515296 (Version 1)
Quarter: 2017Q2

REPORT INFORMATION
  Report Type: Spontaneous
  Country: US (occurrence: US)
  Receive Date: 20170504
  Receipt Date: 20170504
  Transmission Date: 20170830
  Serious: Yes (Other)
  Sender: FDA-Public Use
  Company Number: US-ASTRAZENECA-2017SE46171

PATIENT
  Age: 20531 Day
  Sex: Female
  Weight: 61.2 kg

DRUGS (2)
  1. ARIMIDEX [Suspect]
     Active Substance: ANASTROZOLE
     Indication: BREAST CANCER FEMALE
     Route: 048
     Dates: start: 2007, end: 201704
  2. FASLODEX [Suspect]
     Active Substance: FULVESTRANT
     Indication: BREAST CANCER METASTATIC
     Dosage: TWO 250 MG INTRAMUSCULAR INJECTIONS TO EQUAL 500 MG
     Route: 030
     Dates: start: 20170425

REACTIONS (3)
  - Incorrect drug administration rate [Unknown]
  - Malignant neoplasm progression [Unknown]
  - Injection site pain [Unknown]

NARRATIVE: CASE EVENT DATE: 20170425
